FAERS Safety Report 9499622 (Version 3)
Quarter: 2013Q3

REPORT INFORMATION
  Report Type: Spontaneous
  Country: US (occurrence: US)
  Receive Date: 20130905
  Receipt Date: 20130926
  Transmission Date: 20140515
  Serious: Yes (Life-Threatening, Hospitalization, Disabling, Other)
  Sender: FDA-Public Use
  Company Number: US-CELGENEUS-163-21880-13073942

PATIENT
  Age: 60 Year
  Sex: Male

DRUGS (12)
  1. REVLIMID [Suspect]
     Indication: PLASMA CELL LEUKAEMIA
     Dosage: 25 MILLIGRAM
     Route: 048
     Dates: start: 20130626, end: 20130707
  2. REVLIMID [Suspect]
     Dosage: 5 MILLIGRAM
     Route: 048
     Dates: start: 20130725
  3. VELCADE [Concomitant]
     Indication: PLASMA CELL MYELOMA
     Route: 041
     Dates: start: 20130416
  4. NSAIDS [Concomitant]
     Indication: PRODUCT USED FOR UNKNOWN INDICATION
     Route: 065
  5. ANTIBIOTICS [Concomitant]
     Indication: PRODUCT USED FOR UNKNOWN INDICATION
     Route: 065
  6. ZOFRAN [Concomitant]
     Indication: PRODUCT USED FOR UNKNOWN INDICATION
     Route: 065
  7. TRAZODONE [Concomitant]
     Indication: PRODUCT USED FOR UNKNOWN INDICATION
     Dosage: 25
     Route: 048
  8. RESTORIL [Concomitant]
     Indication: PRODUCT USED FOR UNKNOWN INDICATION
     Dosage: 7.5 MILLIGRAM
     Route: 048
  9. TYLENOL [Concomitant]
     Indication: PRODUCT USED FOR UNKNOWN INDICATION
     Route: 065
  10. FLUID [Concomitant]
     Indication: PRODUCT USED FOR UNKNOWN INDICATION
     Route: 041
     Dates: start: 201307
  11. ANTIHISTAMINES [Concomitant]
     Indication: RASH
     Route: 065
  12. PREDNISONE [Concomitant]
     Indication: RASH
     Route: 065

REACTIONS (3)
  - Sepsis [Not Recovered/Not Resolved]
  - Renal failure [Not Recovered/Not Resolved]
  - Pancytopenia [Unknown]
